FAERS Safety Report 12168975 (Version 1)
Quarter: 2016Q1

REPORT INFORMATION
  Report Type: Spontaneous
  Country: US (occurrence: US)
  Receive Date: 20160310
  Receipt Date: 20160310
  Transmission Date: 20160526
  Serious: Yes (Other)
  Sender: FDA-Public Use
  Company Number: US-PFIZER INC-2016145255

PATIENT
  Age: 51 Year
  Sex: Female
  Weight: 86 kg

DRUGS (9)
  1. DULOXETINE. [Interacting]
     Active Substance: DULOXETINE
     Indication: POST-TRAUMATIC STRESS DISORDER
     Dosage: 60 MG, DAILY
     Route: 048
     Dates: start: 201407
  2. DULOXETINE. [Interacting]
     Active Substance: DULOXETINE
     Indication: OBSESSIVE-COMPULSIVE DISORDER
  3. DULOXETINE. [Interacting]
     Active Substance: DULOXETINE
     Indication: ANXIETY
  4. DULOXETINE. [Interacting]
     Active Substance: DULOXETINE
     Indication: INTENTIONAL SELF-INJURY
  5. VENLAFAXINE HCL [Suspect]
     Active Substance: VENLAFAXINE HYDROCHLORIDE
     Indication: POST-TRAUMATIC STRESS DISORDER
     Dosage: 150 MG, DAILY
  6. VENLAFAXINE HCL [Interacting]
     Active Substance: VENLAFAXINE HYDROCHLORIDE
     Indication: OBSESSIVE-COMPULSIVE DISORDER
  7. DULOXETINE. [Interacting]
     Active Substance: DULOXETINE
     Indication: DEPRESSION
  8. DIAZEPAM. [Concomitant]
     Active Substance: DIAZEPAM
     Indication: ANXIETY
     Dosage: 10 MG, 3X/DAY
     Dates: end: 2014
  9. TEMAZEPAM. [Concomitant]
     Active Substance: TEMAZEPAM
     Indication: SLEEP DISORDER
     Dosage: 30 MG, 1X/DAY, AT BEDTIME
     Route: 048

REACTIONS (14)
  - Drug interaction [Unknown]
  - Libido decreased [Not Recovered/Not Resolved]
  - Attention deficit/hyperactivity disorder [Unknown]
  - Headache [Not Recovered/Not Resolved]
  - Feeling abnormal [Unknown]
  - Nausea [Not Recovered/Not Resolved]
  - Urinary incontinence [Not Recovered/Not Resolved]
  - Amnesia [Not Recovered/Not Resolved]
  - Panic reaction [Unknown]
  - Hostility [Unknown]
  - Weight increased [Not Recovered/Not Resolved]
  - Restless legs syndrome [Not Recovered/Not Resolved]
  - Anal incontinence [Not Recovered/Not Resolved]
  - Insomnia [Unknown]
